FAERS Safety Report 8866282 (Version 6)
Quarter: 2016Q4

REPORT INFORMATION
  Report Type: Spontaneous
  Country: US (occurrence: US)
  Receive Date: 20121025
  Receipt Date: 20161028
  Transmission Date: 20170207
  Serious: Yes (Hospitalization, Disabling, Other)
  Sender: FDA-Public Use
  Company Number: US-009507513-1210USA010264

PATIENT
  Sex: Female

DRUGS (7)
  1. ALENDRONATE SODIUM. [Suspect]
     Active Substance: ALENDRONATE SODIUM
     Indication: OSTEOPOROSIS
  2. BONIVA [Suspect]
     Active Substance: IBANDRONATE SODIUM
     Indication: OSTEOPENIA
     Dosage: 150 MG, UNK
     Route: 048
     Dates: start: 2006
  3. ALENDRONATE SODIUM. [Suspect]
     Active Substance: ALENDRONATE SODIUM
     Indication: OSTEOPENIA
     Dosage: 70 MG, UNK
     Route: 048
     Dates: start: 200207, end: 201106
  4. BONIVA [Suspect]
     Active Substance: IBANDRONATE SODIUM
     Indication: OSTEOPOROSIS
  5. FOSAMAX [Suspect]
     Active Substance: ALENDRONATE SODIUM
     Indication: OSTEOPOROSIS
  6. HORMONES (UNSPECIFIED) [Concomitant]
     Active Substance: UNSPECIFIED INGREDIENT
     Dosage: UNK
     Dates: start: 1990, end: 2003
  7. FOSAMAX [Suspect]
     Active Substance: ALENDRONATE SODIUM
     Indication: OSTEOPENIA
     Dosage: 70 MG, UNK
     Route: 048
     Dates: start: 1999, end: 2006

REACTIONS (20)
  - Femur fracture [Not Recovered/Not Resolved]
  - Osteoporosis [Not Recovered/Not Resolved]
  - Stress fracture [Not Recovered/Not Resolved]
  - Plantar fasciitis [Unknown]
  - Surgery [Unknown]
  - Depression [Unknown]
  - Anxiety [Unknown]
  - Malignant melanoma stage I [Recovered/Resolved]
  - Foot fracture [Unknown]
  - Intramedullary rod insertion [Unknown]
  - Muscle strain [Unknown]
  - Skin neoplasm excision [Recovered/Resolved]
  - Patient-device incompatibility [Recovered/Resolved]
  - Open reduction of fracture [Unknown]
  - Endodontic procedure [Unknown]
  - Bone density decreased [Not Recovered/Not Resolved]
  - Pathological fracture [Unknown]
  - Femur fracture [Not Recovered/Not Resolved]
  - Medical device change [Unknown]
  - Gastrooesophageal reflux disease [Unknown]

NARRATIVE: CASE EVENT DATE: 1999
